FAERS Safety Report 9288343 (Version 1)
Quarter: 2013Q2

REPORT INFORMATION
  Report Type: Spontaneous
  Country: US (occurrence: None)
  Receive Date: 20130513
  Receipt Date: 20130513
  Transmission Date: 20140414
  Serious: Yes (Other)
  Sender: FDA-Public Use
  Company Number: None

PATIENT
  Age: 60 Year
  Sex: Female
  Weight: 63.5 kg

DRUGS (2)
  1. TAMOXIFEN CITRATE [Suspect]
     Indication: BREAST CANCER STAGE I
     Dosage: 1 TABLET DAILY BUCCAL
     Route: 002
     Dates: start: 20120816, end: 20130215
  2. TAMOXIFEN CITRATE [Suspect]
     Indication: MALIGNANT TUMOUR EXCISION
     Dosage: 1 TABLET DAILY BUCCAL
     Route: 002
     Dates: start: 20120816, end: 20130215

REACTIONS (7)
  - Tinnitus [None]
  - Dizziness [None]
  - Vertigo [None]
  - Deafness unilateral [None]
  - Deafness neurosensory [None]
  - Toxicity to various agents [None]
  - Vestibular neuronitis [None]
